FAERS Safety Report 24666432 (Version 2)
Quarter: 2024Q4

REPORT INFORMATION
  Report Type: Spontaneous
  Country: US (occurrence: US)
  Receive Date: 20241126
  Receipt Date: 20241216
  Transmission Date: 20250115
  Serious: No
  Sender: Norvium Bioscience
  Company Number: US-Norvium Bioscience LLC-000076

PATIENT
  Age: 31 Year
  Sex: Female
  Weight: 0 kg

DRUGS (1)
  1. VENLAFAXINE HYDROCHLORIDE [Suspect]
     Active Substance: VENLAFAXINE HYDROCHLORIDE
     Indication: Product used for unknown indication
     Dosage: EXTENDED RELEASE CAPSULES

REACTIONS (2)
  - Product substitution issue [Unknown]
  - Drug ineffective [Unknown]
